FAERS Safety Report 7300764-3 (Version None)
Quarter: 2011Q1

REPORT INFORMATION
  Report Type: 
  Country: None (occurrence: None)
  Receive Date: 20110103
  Receipt Date: 20090731
  Transmission Date: 20110831
  Serious: Yes (Disabling, Other)
  Sender: FDA-Public Use
  Company Number: US-003229

PATIENT
  Sex: Female

DRUGS (3)
  1. OMNISCAN [Suspect]
     Dates: start: 20050821, end: 20050821
  2. MULTIHANCE [Suspect]
     Dates: start: 20061101, end: 20061101
  3. UNSPECIFIED GADOLINIUM CONTRAST AGENT (UNKNOWN) [Suspect]
     Dates: start: 20061122, end: 20061122

REACTIONS (1)
  - NEPHROGENIC SYSTEMIC FIBROSIS [None]
